FAERS Safety Report 5281444-5 (Version None)
Quarter: 2007Q1

REPORT INFORMATION
  Report Type: 
  Country: None (occurrence: None)
  Receive Date: 20070323
  Receipt Date: 20070323
  Transmission Date: 20070707
  Serious: Yes (Hospitalization)
  Sender: FDA-Public Use
  Company Number: None

PATIENT
  Age: 64 Year
  Sex: Female

DRUGS (18)
  1. METHOTREXATE [Suspect]
     Indication: DEHYDRATION
     Dosage: PO
     Route: 048
     Dates: end: 20060927
  2. METHOTREXATE [Suspect]
     Indication: HYPOKALAEMIA
     Dosage: PO
     Route: 048
     Dates: end: 20060927
  3. METHOTREXATE [Suspect]
     Indication: PANCYTOPENIA
     Dosage: PO
     Route: 048
     Dates: end: 20060927
  4. METHADONE HCL [Concomitant]
  5. ESCITALOPRAM [Concomitant]
  6. METOPROLOL SUCCINATE [Concomitant]
  7. GABAPENTIN [Concomitant]
  8. ESOMEPRAZOLE MAGNESIUM [Concomitant]
  9. FUROSEMIDE [Concomitant]
  10. OXYCODONE HCL [Concomitant]
  11. AMOXICILLIN [Concomitant]
  12. POTASSIUM CHLORIDE [Concomitant]
  13. OXYBUTYNIN CHLORIDE [Concomitant]
  14. AMLODIPINE [Concomitant]
  15. MUCINEX [Concomitant]
  16. DOCUSATE [Concomitant]
  17. M.V.I. [Concomitant]
  18. ASCORBIC ACID [Concomitant]

REACTIONS (1)
  - PANCYTOPENIA [None]
